FAERS Safety Report 23335566 (Version 4)
Quarter: 2024Q2

REPORT INFORMATION
  Report Type: Other
  Country: KR (occurrence: KR)
  Receive Date: 20231225
  Receipt Date: 20240409
  Transmission Date: 20240716
  Serious: Yes (Death, Hospitalization, Other)
  Sender: FDA-Public Use
  Company Number: KR-CHUGAI-2023045013

PATIENT
  Age: 50 Year
  Sex: Male

DRUGS (4)
  1. HEMLIBRA [Suspect]
     Active Substance: EMICIZUMAB-KXWH
     Indication: Haemophilia A with anti factor VIII
     Dosage: 240 MILLIGRAM, ONCE/2WEEKS
     Route: 058
     Dates: start: 20220907
  2. NOVOSEVEN [Concomitant]
     Active Substance: COAGULATION FACTOR VIIA RECOMBINANT HUMAN
     Indication: Cerebral haemorrhage
     Dosage: 4.5KIU/KG
     Dates: start: 20170726, end: 20170727
  3. NOVOSEVEN [Concomitant]
     Active Substance: COAGULATION FACTOR VIIA RECOMBINANT HUMAN
     Dosage: UNK
     Dates: start: 20230904
  4. NOVOSEVEN [Concomitant]
     Active Substance: COAGULATION FACTOR VIIA RECOMBINANT HUMAN
     Dosage: UNK
     Dates: start: 20231211

REACTIONS (14)
  - Cerebral haemorrhage [Fatal]
  - Necrosis [Unknown]
  - Hepatorenal syndrome [Unknown]
  - Pulmonary oedema [Unknown]
  - Pneumonitis [Recovered/Resolved]
  - Anuria [Unknown]
  - Haematemesis [Unknown]
  - Gastrointestinal haemorrhage [Unknown]
  - Hernia [Unknown]
  - Hepatic function abnormal [Unknown]
  - Renal impairment [Unknown]
  - Oliguria [Unknown]
  - Blood creatinine increased [Unknown]
  - Haemorrhage [Unknown]

NARRATIVE: CASE EVENT DATE: 20230801
